FAERS Safety Report 21045827 (Version 1)
Quarter: 2022Q3

REPORT INFORMATION
  Report Type: Spontaneous
  Country: US (occurrence: US)
  Receive Date: 20220706
  Receipt Date: 20220706
  Transmission Date: 20221027
  Serious: No
  Sender: FDA-Public Use
  Company Number: US-TEVA-2022-US-2045051

PATIENT
  Age: 53 Year
  Sex: Female

DRUGS (1)
  1. AJOVY [Suspect]
     Active Substance: FREMANEZUMAB-VFRM
     Indication: Migraine
     Dosage: DOSE:225/1.5 MG/ML
     Route: 065

REACTIONS (9)
  - Injection site swelling [Recovered/Resolved]
  - Injection site erythema [Recovered/Resolved]
  - Injection site pruritus [Recovered/Resolved]
  - Injection site induration [Not Recovered/Not Resolved]
  - Injection site pain [Not Recovered/Not Resolved]
  - Urticaria [Not Recovered/Not Resolved]
  - Inappropriate schedule of product administration [Unknown]
  - Immediate post-injection reaction [Unknown]
  - Pruritus [Not Recovered/Not Resolved]

NARRATIVE: CASE EVENT DATE: 20220605
